FAERS Safety Report 9731790 (Version 1)
Quarter: 2013Q4

REPORT INFORMATION
  Report Type: Spontaneous
  Country: US (occurrence: None)
  Receive Date: 20131203
  Receipt Date: 20131203
  Transmission Date: 20140711
  Serious: Yes (Death)
  Sender: FDA-Public Use
  Company Number: US-ALKEM-000272

PATIENT
  Age: 27 Year
  Sex: Female

DRUGS (4)
  1. METFORMIN [Suspect]
     Dosage: ORAL
     Route: 048
  2. ALPRAZOLAM(ALPRAZOLAM) (ALPRAZOLAM) [Suspect]
     Dosage: ORAL
     Route: 048
  3. BENZTROPINE [Suspect]
     Dosage: ORAL
     Route: 048
  4. RISPERIDONE [Suspect]
     Dosage: ORAL
     Route: 048

REACTIONS (3)
  - Completed suicide [None]
  - Overdose [None]
  - Blood ethanol increased [None]
